FAERS Safety Report 16167064 (Version 1)
Quarter: 2019Q2

REPORT INFORMATION
  Report Type: Spontaneous
  Country: US (occurrence: US)
  Receive Date: 20190408
  Receipt Date: 20190408
  Transmission Date: 20190711
  Serious: Yes (Other)
  Sender: FDA-Public Use
  Company Number: US-COLGATE PALMOLIVE COMPANY-20190400961

PATIENT
  Sex: Female

DRUGS (3)
  1. COLGATE MAX FRESH CLEAN MINT [Suspect]
     Active Substance: SODIUM FLUORIDE
     Dosage: SMALL AMOUNT, BID
  2. COLGATE TOTAL WHITENING [Suspect]
     Active Substance: SODIUM FLUORIDE\TRICLOSAN
     Dosage: SMALL AMOUNT, BID
  3. COLGATE TRIPLE ACTION ORIGINAL MINT FLUORIDE [Suspect]
     Active Substance: SODIUM FLUORIDE
     Dosage: SMALL AMOUNT, BID

REACTIONS (6)
  - Oral discomfort [Recovering/Resolving]
  - Throat irritation [Recovering/Resolving]
  - Mouth swelling [Recovering/Resolving]
  - Barrett^s oesophagus [Not Recovered/Not Resolved]
  - Lip swelling [Recovering/Resolving]
  - Pharyngeal swelling [Recovering/Resolving]

NARRATIVE: CASE EVENT DATE: 201901
